FAERS Safety Report 6742231-1 (Version None)
Quarter: 2010Q2

REPORT INFORMATION
  Report Type: 
  Country: None (occurrence: None)
  Receive Date: 20100524
  Receipt Date: 20100512
  Transmission Date: 20101027
  Serious: Yes (Hospitalization)
  Sender: FDA-Public Use
  Company Number: 009326

PATIENT
  Sex: Female
  Weight: 84.4 kg

DRUGS (7)
  1. CERTOLIZUMB PEGOL (CERTOLIZUMAB PEGOL) [Suspect]
     Indication: RHEUMATOID ARTHRITIS
     Dosage: 400 MG 1X/MONTH, 870-IFL-0587-014 SUBCUTANEOUS; 400 MG 1X/MONTH SUBCUTANEOUS
     Route: 058
     Dates: start: 20031128, end: 20100326
  2. DICLOFENAC [Concomitant]
  3. METHOTREXATE [Concomitant]
  4. ASPIRIN /-1428701/ [Concomitant]
  5. LANSORPAZOLE [Concomitant]
  6. PERINDOPRIL [Concomitant]
  7. FOLIC ACID [Concomitant]

REACTIONS (3)
  - GASTROENTERITIS [None]
  - HYPERTENSION [None]
  - TRANSIENT ISCHAEMIC ATTACK [None]
